FAERS Safety Report 8539118-0 (Version None)
Quarter: 2012Q3

REPORT INFORMATION
  Report Type: 
  Country: None (occurrence: None)
  Receive Date: 20120726
  Receipt Date: 20120716
  Transmission Date: 20120928
  Serious: Yes (Hospitalization)
  Sender: FDA-Public Use
  Company Number: US-SANOFI-AVENTIS-2012SA050385

PATIENT
  Age: 45 Year
  Sex: Female

DRUGS (2)
  1. ELOXATIN [Suspect]
     Route: 041
     Dates: start: 20111213, end: 20111213
  2. ELOXATIN [Suspect]
     Route: 041
     Dates: start: 20120606, end: 20120606

REACTIONS (1)
  - FIBROSIS [None]
